FAERS Safety Report 6393058-4 (Version None)
Quarter: 2009Q4

REPORT INFORMATION
  Report Type: 
  Country: None (occurrence: None)
  Receive Date: 20091008
  Receipt Date: 20090930
  Transmission Date: 20100525
  Serious: Yes (Hospitalization, Other)
  Sender: FDA-Public Use
  Company Number: US-B.I. PHARMACEUTICALS,INC./RIDGEFIELD-2007-BP-24574BP

PATIENT
  Sex: Male
  Weight: 137 kg

DRUGS (29)
  1. SPIRIVA [Suspect]
     Indication: CHRONIC OBSTRUCTIVE PULMONARY DISEASE
     Dosage: 18 MCG
     Route: 055
     Dates: start: 19990101
  2. SPIRIVA [Suspect]
     Indication: POST-TRAUMATIC STRESS DISORDER
  3. PROPOXYPLENE 100/APAP [Concomitant]
  4. KETOCONAZOLE SHAMPOO 2% [Concomitant]
  5. MAPAP [Concomitant]
     Dosage: 2000 MG
  6. SERTRAZINE HCL [Concomitant]
     Indication: DEPRESSION
     Dosage: 200 MG
     Route: 048
  7. LANTIS INSULIN GLARGINE [Concomitant]
     Route: 058
  8. FERROUS SULFATE TAB [Concomitant]
     Dosage: 650 MG
  9. LOSARTAN [Concomitant]
     Dosage: 200 MG
  10. METOPROLOL TARTRATE [Concomitant]
     Dosage: 200 MG
  11. LISINOPRIL [Concomitant]
     Dosage: 40 MG
  12. METFORMIN HCL [Concomitant]
     Dosage: 2000 MG
  13. METOCLOPRAMIDE HCL [Concomitant]
     Dosage: 50 MG
  14. NIFEDIPINE (EQV-CC) SA [Concomitant]
     Dosage: 30 MG
  15. SIMVASTATIN [Concomitant]
     Dosage: 80 MG
  16. ALPRAZOLAM [Concomitant]
     Dosage: 1.5 MG
  17. GABAPENTIN [Concomitant]
     Dosage: 1600 MG
  18. ABSORBASE TOPICAL OINTMENT [Concomitant]
     Route: 061
  19. MULTI-VITAMIN [Concomitant]
     Route: 048
  20. ZETIA [Concomitant]
     Dosage: 10 MG
  21. HUMALOG [Concomitant]
  22. FUROSEMIDE (LASIX EQ) [Concomitant]
     Dosage: 40 MG
     Route: 048
  23. ADVAIR DISKUS 100/50 [Concomitant]
     Dosage: 2 PUF
  24. VENTOLIN HFA [Concomitant]
  25. SODIUM POLYSTYRENE SULF POWD [Concomitant]
  26. FLUDROCORTISONE [Concomitant]
     Dosage: 0.2 MG
  27. FLAX OIL [Concomitant]
  28. FISH OIL [Concomitant]
  29. OXYGEN [Concomitant]

REACTIONS (10)
  - BLOOD POTASSIUM INCREASED [None]
  - CARDIAC DISORDER [None]
  - CORONARY ARTERY BYPASS [None]
  - ERECTILE DYSFUNCTION [None]
  - INFLAMMATION [None]
  - PROSTATE CANCER [None]
  - PROSTATIC DISORDER [None]
  - PROSTATIC SPECIFIC ANTIGEN ABNORMAL [None]
  - PROSTATOMEGALY [None]
  - PROTEIN TOTAL INCREASED [None]
